FAERS Safety Report 26092891 (Version 1)
Quarter: 2025Q4

REPORT INFORMATION
  Report Type: Spontaneous
  Country: US (occurrence: US)
  Receive Date: 20251126
  Receipt Date: 20251126
  Transmission Date: 20260117
  Serious: No
  Sender: BAYER HEALTHCARE LLC
  Company Number: US-BAYER-2025A156159

PATIENT
  Age: 16 Year
  Sex: Male

DRUGS (2)
  1. CLARITIN [Suspect]
     Active Substance: LORATADINE
  2. Brompheniramine maleate;Pseudoephedrine [Concomitant]

REACTIONS (1)
  - Rash [Unknown]
